FAERS Safety Report 10607575 (Version 2)
Quarter: 2014Q4

REPORT INFORMATION
  Report Type: Report from Study
  Country: BR (occurrence: BR)
  Receive Date: 20141125
  Receipt Date: 20141125
  Transmission Date: 20150529
  Serious: Yes (Death, Hospitalization)
  Sender: FDA-Public Use
  Company Number: BR-BRISTOL-MYERS SQUIBB COMPANY-20870440

PATIENT
  Age: 74 Year
  Sex: Male
  Weight: 68 kg

DRUGS (1)
  1. ERBITUX [Suspect]
     Active Substance: CETUXIMAB
     Indication: SALIVARY GLAND CANCER
     Route: 042
     Dates: start: 20140428

REACTIONS (12)
  - Respiratory failure [Fatal]
  - Oesophageal disorder [Fatal]
  - Pain [Unknown]
  - Nausea [Unknown]
  - Blister [Not Recovered/Not Resolved]
  - Skin reaction [Recovering/Resolving]
  - Scab [Not Recovered/Not Resolved]
  - Pneumonia [Fatal]
  - Rash pustular [Recovering/Resolving]
  - Vomiting [Unknown]
  - Erythema [Not Recovered/Not Resolved]
  - Malaise [Unknown]
